FAERS Safety Report 6255737-9 (Version None)
Quarter: 2009Q3

REPORT INFORMATION
  Report Type: 
  Country: None (occurrence: None)
  Receive Date: 20090701
  Receipt Date: 20090615
  Transmission Date: 20100115
  Serious: Yes (Death, Hospitalization)
  Sender: FDA-Public Use
  Company Number: 2009BI018657

PATIENT
  Sex: Male

DRUGS (5)
  1. ZEVALIN [Suspect]
     Indication: NON-HODGKIN'S LYMPHOMA
     Dosage: 1X; IV
     Route: 042
     Dates: start: 20081023, end: 20081023
  2. RITUXIMAB [Concomitant]
  3. ANTIHYPERTENSIVE (NOS) [Concomitant]
  4. MABTHERA [Concomitant]
  5. NEUPOGEN [Concomitant]

REACTIONS (12)
  - ASTHENIA [None]
  - BLOOD GLUCOSE DECREASED [None]
  - COMA [None]
  - COUGH [None]
  - DIZZINESS [None]
  - ENCEPHALOPATHY [None]
  - FALL [None]
  - FEBRILE NEUTROPENIA [None]
  - HEAD INJURY [None]
  - HYPONATRAEMIA [None]
  - MENINGITIS TUBERCULOUS [None]
  - SPLENOMEGALY [None]
